FAERS Safety Report 5789375-9 (Version None)
Quarter: 2008Q2

REPORT INFORMATION
  Report Type: 
  Country: None (occurrence: None)
  Receive Date: 20080626
  Receipt Date: 20080220
  Transmission Date: 20081010
  Serious: No
  Sender: FDA-Public Use
  Company Number: US-ASTRAZENECA-2008UW02237

PATIENT
  Age: 75 Year
  Sex: Female
  Weight: 41.7 kg

DRUGS (6)
  1. PULMICORT RESPULES [Suspect]
     Indication: CHRONIC OBSTRUCTIVE PULMONARY DISEASE
     Route: 055
     Dates: start: 20071201
  2. BROVANA [Suspect]
     Dates: start: 20071201
  3. XOPENEX [Suspect]
     Dates: start: 20071201
  4. PREDNISONE [Concomitant]
  5. DIGOXIN [Concomitant]
  6. COLACE [Concomitant]

REACTIONS (1)
  - CONSTIPATION [None]
